FAERS Safety Report 12442165 (Version 1)
Quarter: 2016Q2

REPORT INFORMATION
  Report Type: Spontaneous
  Country: DE (occurrence: DE)
  Receive Date: 20160607
  Receipt Date: 20160607
  Transmission Date: 20160815
  Serious: Yes (Other)
  Sender: FDA-Public Use
  Company Number: PHHY2016DE072222

PATIENT
  Sex: Male

DRUGS (3)
  1. LUCENTIS [Suspect]
     Active Substance: RANIBIZUMAB
     Indication: DIABETIC RETINAL OEDEMA
     Dosage: THREE INJECTIONS
     Route: 065
     Dates: start: 2015, end: 2015
  2. NEVANAC [Suspect]
     Active Substance: NEPAFENAC
     Indication: POSTOPERATIVE CARE
     Dosage: 1 DF, TID
     Route: 047
     Dates: start: 20160109, end: 201603
  3. NEVANAC [Suspect]
     Active Substance: NEPAFENAC
     Dosage: UNK
     Route: 047

REACTIONS (8)
  - Diabetic retinal oedema [Unknown]
  - Nasal congestion [Unknown]
  - Eye irritation [Unknown]
  - Photophobia [Unknown]
  - Drug ineffective [Unknown]
  - Eye swelling [Unknown]
  - Swelling [Unknown]
  - Cataract [Unknown]
